FAERS Safety Report 15219178 (Version 1)
Quarter: 2018Q3

REPORT INFORMATION
  Report Type: Spontaneous
  Country: US (occurrence: US)
  Receive Date: 20180731
  Receipt Date: 20180731
  Transmission Date: 20181010
  Serious: Yes (Hospitalization)
  Sender: FDA-Public Use
  Company Number: US-EMMAUS MEDICAL, INC.-EMM201806-000235

PATIENT
  Age: 17 Year
  Sex: Male

DRUGS (11)
  1. ZOFRAN [Concomitant]
     Active Substance: ONDANSETRON HYDROCHLORIDE
  2. ENDARI [Suspect]
     Active Substance: GLUTAMINE
     Indication: SICKLE CELL DISEASE
     Route: 048
     Dates: start: 20180314
  3. MIRALAX [Concomitant]
     Active Substance: POLYETHYLENE GLYCOL 3350
  4. HYDROXYUREA. [Concomitant]
     Active Substance: HYDROXYUREA
  5. FOLIC ACID. [Concomitant]
     Active Substance: FOLIC ACID
  6. JADENU [Concomitant]
     Active Substance: DEFERASIROX
  7. NAPROXEN. [Concomitant]
     Active Substance: NAPROXEN
  8. PENICILLIN [Concomitant]
     Active Substance: PENICILLIN
  9. MELATONIN [Concomitant]
     Active Substance: MELATONIN
  10. HYDROMORPHONE [Concomitant]
     Active Substance: HYDROMORPHONE
  11. PROTONIX [Concomitant]
     Active Substance: PANTOPRAZOLE SODIUM

REACTIONS (1)
  - Pain [Recovered/Resolved]

NARRATIVE: CASE EVENT DATE: 20180513
